FAERS Safety Report 7724408-1 (Version None)
Quarter: 2011Q3

REPORT INFORMATION
  Report Type: 
  Country: None (occurrence: None)
  Receive Date: 20110901
  Receipt Date: 20110825
  Transmission Date: 20111222
  Serious: No
  Sender: FDA-Public Use
  Company Number: US-B.I. PHARMACEUTICALS,INC./RIDGEFIELD-2011-BP-19824BP

PATIENT
  Sex: Female

DRUGS (7)
  1. PRAVASTATIN [Concomitant]
     Dosage: 20 MG
     Route: 048
  2. SYNTHROID [Concomitant]
     Dosage: 0.15 MG
     Route: 048
  3. TEMAZEPAM [Concomitant]
     Dosage: 15 MG
     Route: 048
  4. DILTIAZEM HCL [Concomitant]
     Dosage: 240 MG
     Route: 048
  5. EVISTA [Concomitant]
     Dosage: 60 MG
     Route: 048
  6. SPIRIVA [Suspect]
     Indication: CHRONIC OBSTRUCTIVE PULMONARY DISEASE
     Dosage: 18 MCG
     Route: 055
     Dates: start: 20110101
  7. FOLIC ACID [Concomitant]
     Dosage: 40 MCG
     Route: 048

REACTIONS (1)
  - DYSPNOEA [None]
